FAERS Safety Report 8072514-7 (Version None)
Quarter: 2012Q1

REPORT INFORMATION
  Report Type: 
  Country: None (occurrence: None)
  Receive Date: 20120126
  Receipt Date: 20120124
  Transmission Date: 20120608
  Serious: Yes (Hospitalization)
  Sender: FDA-Public Use
  Company Number: GB-PFIZER INC-2009201807

PATIENT
  Age: 48 Year

DRUGS (13)
  1. NELFINAVIR MESYLATE [Suspect]
  2. ZIDOVUDINE [Suspect]
  3. ACETYLSALICYLIC ACID SRT [Suspect]
  4. EFAVIRENZ [Suspect]
  5. OMEGA-3 TRIGLYCERIDES [Concomitant]
     Dosage: UNK
  6. PRAVASTATIN SODIUM [Concomitant]
  7. LAMIVUDINE [Suspect]
  8. TENOFOVIR [Suspect]
  9. ATORVASTATIN [Concomitant]
  10. KALETRA [Suspect]
  11. STAVUDINE [Suspect]
  12. RAMIPRIL [Suspect]
  13. DIDANOSINE [Suspect]

REACTIONS (2)
  - DRUG RESISTANCE [None]
  - MYOCARDIAL INFARCTION [None]
